FAERS Safety Report 12891533 (Version 1)
Quarter: 2016Q4

REPORT INFORMATION
  Report Type: Spontaneous
  Country: FR (occurrence: FR)
  Receive Date: 20161028
  Receipt Date: 20161028
  Transmission Date: 20170207
  Serious: Yes (Life-Threatening, Hospitalization)
  Sender: FDA-Public Use
  Company Number: FR-ORION CORPORATION ORION PHARMA-TREX2015-0680

PATIENT
  Age: 77 Year
  Sex: Male

DRUGS (12)
  1. IMETH [Suspect]
     Active Substance: METHOTREXATE SODIUM
     Route: 065
  2. LYRICA [Concomitant]
     Active Substance: PREGABALIN
     Route: 065
  3. CORTANCYL [Concomitant]
     Active Substance: PREDNISONE
     Route: 065
  4. IMETH [Suspect]
     Active Substance: METHOTREXATE SODIUM
     Dosage: STRENGTH: 10 MG
     Route: 048
     Dates: start: 20150626, end: 201509
  5. MIANSERIN [Concomitant]
     Active Substance: MIANSERIN
     Route: 065
  6. STILNOX [Concomitant]
     Active Substance: ZOLPIDEM TARTRATE
     Route: 065
  7. TEMESTA [Concomitant]
     Active Substance: LORAZEPAM
     Route: 065
  8. COAPROVEL [Concomitant]
     Active Substance: HYDROCHLOROTHIAZIDE\IRBESARTAN
     Route: 065
  9. RISPERDAL [Concomitant]
     Active Substance: RISPERIDONE
     Route: 065
  10. CYMBALTA [Concomitant]
     Active Substance: DULOXETINE HYDROCHLORIDE
     Route: 065
  11. THERALENE [Concomitant]
     Active Substance: TRIMEPRAZINE
     Route: 065
  12. AMLODIPINE [Concomitant]
     Active Substance: AMLODIPINE BESYLATE
     Route: 065

REACTIONS (18)
  - Drug prescribing error [Unknown]
  - Pneumonia [Unknown]
  - Pneumonia pseudomonal [Unknown]
  - Polyneuropathy [Unknown]
  - Accidental overdose [Unknown]
  - Pneumocystis jirovecii pneumonia [Recovered/Resolved]
  - Immune reconstitution inflammatory syndrome [Unknown]
  - Aspiration [Unknown]
  - Myopathy [Unknown]
  - CD4 lymphocytes decreased [Unknown]
  - Confusional state [Unknown]
  - Acute kidney injury [Unknown]
  - Immunoglobulins decreased [Unknown]
  - Shock [Unknown]
  - Vasoplegia syndrome [Unknown]
  - CD8 lymphocytes decreased [Unknown]
  - Pneumonia escherichia [Unknown]
  - Inappropriate schedule of drug administration [Unknown]

NARRATIVE: CASE EVENT DATE: 20150625
